FAERS Safety Report 9842996 (Version 1)
Quarter: 2013Q4

REPORT INFORMATION
  Report Type: Spontaneous
  Country: US (occurrence: None)
  Receive Date: 20131223
  Receipt Date: 20131223
  Transmission Date: 20140711
  Serious: No
  Sender: FDA-Public Use
  Company Number: 219277LEO

PATIENT
  Age: 80 Year
  Sex: Female

DRUGS (1)
  1. PICATO (0.015 %, GEL) [Suspect]
     Indication: ACTINIC KERATOSIS
     Route: 061
     Dates: start: 20120924, end: 20120926

REACTIONS (11)
  - Discomfort [None]
  - Pain [None]
  - Rash macular [None]
  - Erythema [None]
  - Pruritus [None]
  - Inflammation [None]
  - Unevaluable event [None]
  - Dry skin [None]
  - Insomnia [None]
  - Skin sensitisation [None]
  - Drug administered at inappropriate site [None]
